FAERS Safety Report 12569972 (Version 1)
Quarter: 2016Q3

REPORT INFORMATION
  Report Type: Spontaneous
  Country: CA (occurrence: CA)
  Receive Date: 20160719
  Receipt Date: 20160719
  Transmission Date: 20161109
  Serious: Yes (Hospitalization)
  Sender: FDA-Public Use
  Company Number: CA-AMGEN-CANSP2016090048

PATIENT
  Age: 90 Year
  Sex: Female
  Weight: 61 kg

DRUGS (7)
  1. AZOPT [Concomitant]
     Active Substance: BRINZOLAMIDE
     Route: 047
  2. PROLIA [Suspect]
     Active Substance: DENOSUMAB
     Indication: OSTEOPOROSIS
     Dosage: 60 MG, ONE TIME DOSE
     Route: 058
  3. ASAPHEN [Concomitant]
     Active Substance: ASPIRIN
  4. SOLUCAL [Concomitant]
  5. TRAVOPROST [Concomitant]
     Active Substance: TRAVOPROST
  6. BISOPROLOL [Concomitant]
     Active Substance: BISOPROLOL
  7. MEMANTINE. [Concomitant]
     Active Substance: MEMANTINE

REACTIONS (5)
  - Oedema peripheral [Unknown]
  - Asthenia [Unknown]
  - Executive dysfunction [Unknown]
  - Fall [Unknown]
  - General physical health deterioration [Unknown]
